FAERS Safety Report 16910809 (Version 1)
Quarter: 2019Q4

REPORT INFORMATION
  Report Type: Spontaneous
  Country: US (occurrence: US)
  Receive Date: 20191012
  Receipt Date: 20191012
  Transmission Date: 20200122
  Serious: No
  Sender: FDA-Public Use
  Company Number: US-009507513-1910USA004329

PATIENT
  Age: 36 Year
  Sex: Female
  Weight: 58.96 kg

DRUGS (1)
  1. NUVARING [Suspect]
     Active Substance: ETHINYL ESTRADIOL\ETONOGESTREL
     Indication: CONTRACEPTION
     Dosage: 1 RING, 3 WEEKS ON
     Route: 067

REACTIONS (2)
  - Fungal infection [Not Recovered/Not Resolved]
  - Bacterial vaginosis [Not Recovered/Not Resolved]

NARRATIVE: CASE EVENT DATE: 201904
